FAERS Safety Report 4990071-6 (Version None)
Quarter: 2006Q2

REPORT INFORMATION
  Report Type: 
  Country: None (occurrence: None)
  Receive Date: 20060503
  Receipt Date: 20040611
  Transmission Date: 20061013
  Serious: Yes (Hospitalization, Disabling)
  Sender: FDA-Public Use
  Company Number: US-MERCK-0406USA01408

PATIENT
  Age: 51 Year
  Sex: Male
  Weight: 88 kg

DRUGS (6)
  1. VIOXX [Suspect]
     Indication: PAIN MANAGEMENT
     Route: 048
     Dates: start: 20030101, end: 20031201
  2. VIOXX [Suspect]
     Indication: INFLAMMATION
     Route: 048
     Dates: start: 20030101, end: 20031201
  3. ALLEGRA [Concomitant]
     Indication: HYPERSENSITIVITY
     Route: 065
  4. ASPIRIN [Concomitant]
     Indication: PROPHYLAXIS
     Route: 065
  5. METHOCARBAMOL [Concomitant]
     Route: 065
     Dates: start: 20030801
  6. MIRALAX [Concomitant]
     Route: 065

REACTIONS (8)
  - CEREBRAL HAEMORRHAGE [None]
  - CEREBRAL THROMBOSIS [None]
  - CRYOGLOBULINAEMIA [None]
  - DEEP VEIN THROMBOSIS [None]
  - DYSARTHRIA [None]
  - JOINT EFFUSION [None]
  - OEDEMA PERIPHERAL [None]
  - VASCULITIS [None]
